FAERS Safety Report 6718348-4 (Version None)
Quarter: 2010Q2

REPORT INFORMATION
  Report Type: 
  Country: None (occurrence: None)
  Receive Date: 20100510
  Receipt Date: 20100507
  Transmission Date: 20101027
  Serious: No
  Sender: FDA-Public Use
  Company Number: US-PURDUE-USA-2010-0043734

PATIENT
  Age: 50 Year
  Sex: Female

DRUGS (1)
  1. RYZOLT [Suspect]
     Indication: MUSCULOSKELETAL PAIN
     Dosage: 200 MG, SINGLE

REACTIONS (2)
  - HYPERSENSITIVITY [None]
  - SINUS TACHYCARDIA [None]
